FAERS Safety Report 12592016 (Version 1)
Quarter: 2016Q3

REPORT INFORMATION
  Report Type: Spontaneous
  Country: IT (occurrence: IT)
  Receive Date: 20160726
  Receipt Date: 20160726
  Transmission Date: 20161109
  Serious: Yes (Other)
  Sender: FDA-Public Use
  Company Number: IT-ROCHE-1801335

PATIENT
  Age: 61 Year
  Sex: Male

DRUGS (5)
  1. EXVIERA [Suspect]
     Active Substance: DASABUVIR
     Indication: HEPATITIS C
     Dosage: DAILY, LAST DOSE ON 30/DEC/2015
     Route: 048
     Dates: start: 20150716
  2. MICARDIS PLUS [Concomitant]
     Active Substance: HYDROCHLOROTHIAZIDE\TELMISARTAN
     Dosage: 80 MG / 25 MG BLISTER PACK (POLYAMIDE/AL/PVC)
     Route: 048
  3. VIEKIRAX [Suspect]
     Active Substance: OMBITASVIR\PARITAPREVIR\RITONAVIR
     Indication: HEPATITIS C
     Dosage: DAILY 2 DOSAGE UNITS LAST DOSE ON 30/DEC/2015
     Route: 048
     Dates: start: 20150716
  4. COPEGUS [Suspect]
     Active Substance: RIBAVIRIN
     Indication: HEPATITIS C
     Dosage: DAILY, LAST DOSE ON 30/DEC/2015
     Route: 048
     Dates: start: 20150716
  5. TENORMIN [Concomitant]
     Active Substance: ATENOLOL
     Route: 048

REACTIONS (2)
  - Hepatocellular carcinoma [Not Recovered/Not Resolved]
  - Hepatic neoplasm [Not Recovered/Not Resolved]

NARRATIVE: CASE EVENT DATE: 20160304
